FAERS Safety Report 7262824-5 (Version None)
Quarter: 2011Q1

REPORT INFORMATION
  Report Type: 
  Country: None (occurrence: None)
  Receive Date: 20110130
  Receipt Date: 20100901
  Transmission Date: 20110831
  Serious: No
  Sender: FDA-Public Use
  Company Number: US-ABBOTT-10P-163-0667596-00

PATIENT
  Age: 47 Year
  Sex: Male

DRUGS (5)
  1. PROTONIC [Concomitant]
     Indication: PRODUCT USED FOR UNKNOWN INDICATION
  2. HUMIRA [Suspect]
     Indication: CROHN'S DISEASE
     Dosage: ON 09 SEP 2010. WILL CHANGE TO 40MG EVERY OTHER WEEK
     Dates: start: 20100801
  3. K-TAB [Concomitant]
     Indication: PRODUCT USED FOR UNKNOWN INDICATION
  4. GLIMAPRIDE [Concomitant]
     Indication: PRODUCT USED FOR UNKNOWN INDICATION
  5. NOVALOG [Concomitant]
     Indication: PRODUCT USED FOR UNKNOWN INDICATION
     Dosage: SLIDING SCALE

REACTIONS (3)
  - DIARRHOEA [None]
  - ABNORMAL FAECES [None]
  - FREQUENT BOWEL MOVEMENTS [None]
